FAERS Safety Report 9061737 (Version 1)
Quarter: 2013Q1

REPORT INFORMATION
  Report Type: Spontaneous
  Country: US (occurrence: None)
  Receive Date: 20130122
  Receipt Date: 20130122
  Transmission Date: 20140127
  Serious: Yes (Death)
  Sender: FDA-Public Use
  Company Number: 1553027

PATIENT
  Age: 53 Year
  Sex: Female

DRUGS (4)
  1. FENTANYL CITRATE [Suspect]
     Indication: PRODUCT USED FOR UNKNOWN INDICATION
     Dosage: NOT REPORTED,  UNKNOWN,  UNKNOWN?UNKNOWN
  2. CITALOPRAM [Suspect]
     Dosage: NOT REPORTED,  UNKNOWN,  UNKNOWN?UNKNOWN
  3. CYCLOBENZAPRINE [Suspect]
     Dosage: NOT REPORTED,  UNKNOWN,  UNKNOWN?UNKNOWN
  4. TRIAZOLAM [Suspect]
     Dosage: NOT REPORTED,  UNKNOWN,  UNKNOWN?UNKNOWN

REACTIONS (2)
  - Poisoning [None]
  - Potentiating drug interaction [None]
